FAERS Safety Report 7353679-9 (Version None)
Quarter: 2011Q1

REPORT INFORMATION
  Report Type: 
  Country: None (occurrence: None)
  Receive Date: 20110315
  Receipt Date: 20081129
  Transmission Date: 20110831
  Serious: Yes (Death, Other)
  Sender: FDA-Public Use
  Company Number: US-BAYER-200840470NA

PATIENT
  Sex: Female
  Weight: 102.1 kg

DRUGS (34)
  1. AMIODARONE HCL [Concomitant]
     Dosage: 200 MG, QD
     Route: 048
  2. LIPITOR [Concomitant]
     Dosage: 20 MG, QD
     Route: 048
  3. DIOVAN [Concomitant]
     Dosage: 80 MG, BID
     Route: 048
     Dates: start: 20061120
  4. PLAVIX [Concomitant]
     Dosage: 75 MG, QD
     Route: 048
  5. ATIVAN [Concomitant]
     Dosage: 1 MG, BID
     Route: 048
  6. FRESH FROZEN PLASMA [Concomitant]
     Indication: OPERATIVE HAEMORRHAGE
     Dosage: 4 U, UNK
     Dates: start: 20061202
  7. INSULIN [INSULIN] [Concomitant]
     Indication: HYPERGLYCAEMIA
     Dosage: UNK
     Route: 041
     Dates: start: 20061202, end: 20061205
  8. NIPRIDE [Concomitant]
     Indication: BLOOD PRESSURE MANAGEMENT
     Dosage: UNK
     Route: 041
     Dates: start: 20061202, end: 20061202
  9. VANCOMYCIN [Concomitant]
     Dosage: 1 G, BID
     Route: 042
     Dates: start: 20061203
  10. LEVAQUIN [Concomitant]
     Dosage: UNK
     Dates: start: 20061206
  11. SOTALOL HYDROCHLORIDE [Concomitant]
     Dosage: 40 MG, TID
     Route: 048
     Dates: start: 20060613
  12. THROMBIN LOCAL SOLUTION [Concomitant]
     Indication: COAGULOPATHY
     Dosage: 5.000 U, UNK
     Route: 042
     Dates: start: 20061202, end: 20061202
  13. TRASYLOL [Suspect]
     Indication: CORONARY ARTERY BYPASS
     Dosage: 100 ML FOLLOWED BY CONTINUOUS INFUSION OF 25 ML/HR
     Route: 042
     Dates: start: 20061202, end: 20061202
  14. PLATELETS [Concomitant]
     Indication: OPERATIVE HAEMORRHAGE
     Dosage: 2 U, UNK
     Dates: start: 20061202
  15. ATENOLOL [Concomitant]
     Dosage: 50 MG, QD
     Route: 048
     Dates: start: 19990617
  16. MIDAZOLAM [Concomitant]
     Indication: SEDATIVE THERAPY
     Dosage: 5 ML, UNK
     Route: 042
     Dates: start: 20061202, end: 20061202
  17. DOBUTAMINE [Concomitant]
     Indication: BLOOD PRESSURE MANAGEMENT
  18. TOBRAMYCIN [Concomitant]
     Dosage: 360 MG, ONCE
     Route: 042
     Dates: start: 20061205
  19. PROTAMINE SULFATE [Concomitant]
     Indication: HEPARIN NEUTRALISATION THERAPY
     Dosage: 400 MG, UNK
     Route: 042
     Dates: start: 20061202, end: 20061202
  20. RED BLOOD CELLS [Concomitant]
     Indication: OPERATIVE HAEMORRHAGE
     Dosage: 2 U, BID
     Dates: start: 20061202
  21. AMIODARONE HCL [Concomitant]
     Dosage: UNK
     Route: 042
     Dates: start: 20061203
  22. CLONIDINE [Concomitant]
     Dosage: 0.1 MG - 0.3 MG, BID
     Route: 048
     Dates: start: 19990617
  23. PROPOFOL [Concomitant]
     Indication: RESTLESSNESS
     Dosage: UNK
  24. VANCOMYCIN [Concomitant]
     Dosage: 1 G EVERY FORTY-EIGHT HOURS
     Dates: start: 20061205
  25. XANAX [Concomitant]
     Dosage: 0.5 MG, UNK
     Route: 048
     Dates: start: 19990617
  26. DOBUTAMINE [Concomitant]
     Indication: HYPOTENSION
     Dosage: UNK
     Route: 041
     Dates: start: 20061202, end: 20061203
  27. NIPRIDE [Concomitant]
     Dosage: UNK
     Route: 042
     Dates: start: 20061204
  28. VANCOMYCIN [Concomitant]
     Indication: SEPSIS
     Dosage: 1.5 G, UNK
     Route: 042
     Dates: start: 20061202, end: 20061202
  29. COUMADIN [Concomitant]
     Indication: ATRIAL FIBRILLATION
     Dosage: VARIOUS DOSAGES
     Route: 048
     Dates: start: 19980101
  30. CARDURA [Concomitant]
     Dosage: 2 MG, QD
     Route: 048
     Dates: start: 19990626
  31. FENTANYL [Concomitant]
     Indication: SEDATIVE THERAPY
     Dosage: 500 MCG/100 ML
     Route: 041
     Dates: start: 20061202, end: 20061202
  32. FENTANYL [Concomitant]
     Indication: PAIN
  33. HEPARIN [Concomitant]
     Indication: THROMBOSIS PROPHYLAXIS
     Dosage: 40.000 U, UNK
     Route: 042
     Dates: start: 20061202, end: 20061202
  34. VANCOMYCIN [Concomitant]
     Indication: ESCHERICHIA INFECTION
     Dosage: 1.0 G, UNK
     Route: 042
     Dates: start: 20061202, end: 20061202

REACTIONS (8)
  - DEPRESSION [None]
  - ANXIETY [None]
  - UNEVALUABLE EVENT [None]
  - PAIN [None]
  - INJURY [None]
  - ANHEDONIA [None]
  - RENAL FAILURE [None]
  - FEAR [None]
